FAERS Safety Report 22540829 (Version 1)
Quarter: 2023Q2

REPORT INFORMATION
  Report Type: Spontaneous
  Country: US (occurrence: US)
  Receive Date: 20230609
  Receipt Date: 20230609
  Transmission Date: 20230721
  Serious: Yes (Other)
  Sender: FDA-Public Use
  Company Number: US-BRISTOL-MYERS SQUIBB COMPANY-2023-081448

PATIENT
  Age: 87 Year
  Sex: Female
  Weight: 59.87 kg

DRUGS (2)
  1. ELIQUIS [Suspect]
     Active Substance: APIXABAN
     Indication: Pulmonary embolism
     Route: 048
  2. XALKORI [Suspect]
     Active Substance: CRIZOTINIB
     Indication: Non-small cell lung cancer stage IV
     Dosage: 1 CAPSULE ORALLY 2 TIMES PER DAY.
     Route: 048

REACTIONS (2)
  - Conjunctival haemorrhage [Unknown]
  - Intentional product use issue [Unknown]
